FAERS Safety Report 5313870-X (Version None)
Quarter: 2007Q2

REPORT INFORMATION
  Report Type: 
  Country: None (occurrence: None)
  Receive Date: 20070501
  Receipt Date: 20070420
  Transmission Date: 20071010
  Serious: Yes (Hospitalization)
  Sender: FDA-Public Use
  Company Number: JP-JNJFOC-20060102712

PATIENT
  Sex: Female
  Weight: 54 kg

DRUGS (33)
  1. REMICADE [Suspect]
     Route: 042
  2. REMICADE [Suspect]
     Route: 042
  3. REMICADE [Suspect]
     Route: 042
  4. REMICADE [Suspect]
     Route: 042
  5. REMICADE [Suspect]
     Route: 042
  6. REMICADE [Suspect]
     Route: 042
  7. REMICADE [Suspect]
     Route: 042
  8. REMICADE [Suspect]
     Route: 042
  9. REMICADE [Suspect]
     Route: 042
  10. REMICADE [Suspect]
     Route: 042
  11. REMICADE [Suspect]
     Route: 042
  12. REMICADE [Suspect]
     Route: 042
  13. REMICADE [Suspect]
     Route: 042
  14. REMICADE [Suspect]
     Indication: RHEUMATOID ARTHRITIS
     Route: 042
  15. METHOTREXATE [Suspect]
     Route: 048
  16. METHOTREXATE [Suspect]
     Route: 048
  17. METHOTREXATE [Suspect]
     Route: 048
  18. METHOTREXATE [Suspect]
     Route: 048
  19. METHOTREXATE [Suspect]
     Route: 048
  20. METHOTREXATE [Suspect]
     Route: 048
  21. METHOTREXATE [Suspect]
     Route: 048
  22. METHOTREXATE [Suspect]
     Indication: JUVENILE ARTHRITIS
     Dosage: 10 - 17 MG/WK
     Route: 048
  23. PREDONINE [Suspect]
     Route: 048
  24. PREDONINE [Suspect]
     Route: 048
  25. PREDONINE [Suspect]
     Route: 048
  26. PREDONINE [Suspect]
     Indication: JUVENILE ARTHRITIS
     Route: 048
  27. LOXONIN [Suspect]
     Route: 048
  28. LOXONIN [Suspect]
     Indication: JUVENILE ARTHRITIS
     Route: 048
  29. AZULFIDINE EN-TABS [Suspect]
     Indication: JUVENILE ARTHRITIS
     Route: 048
  30. FOLIAMIN [Suspect]
     Indication: DRUG USE FOR UNKNOWN INDICATION
     Route: 048
  31. GASTER [Suspect]
     Indication: DRUG USE FOR UNKNOWN INDICATION
     Route: 048
  32. ONEALFA [Suspect]
     Indication: DRUG USE FOR UNKNOWN INDICATION
     Dosage: 0.5 RG
     Route: 048
  33. ADRENAL HORMONE PREPARATIONS [Concomitant]
     Indication: JUVENILE ARTHRITIS

REACTIONS (2)
  - PEPTIC ULCER [None]
  - UPPER RESPIRATORY TRACT INFLAMMATION [None]
